FAERS Safety Report 20509240 (Version 1)
Quarter: 2022Q1

REPORT INFORMATION
  Report Type: Spontaneous
  Country: US (occurrence: US)
  Receive Date: 20220223
  Receipt Date: 20220223
  Transmission Date: 20220424
  Serious: No
  Sender: FDA-Public Use
  Company Number: US-JNJFOC-20220242754

PATIENT

DRUGS (1)
  1. SPRAVATO [Suspect]
     Active Substance: ESKETAMINE
     Indication: Depression
     Route: 065
     Dates: start: 2020

REACTIONS (5)
  - Dissociative disorder [Unknown]
  - Energy increased [Unknown]
  - Fatigue [Unknown]
  - Pollakiuria [Unknown]
  - Depression [Unknown]
